FAERS Safety Report 11500157 (Version 1)
Quarter: 2015Q3

REPORT INFORMATION
  Report Type: Spontaneous
  Country: US (occurrence: None)
  Receive Date: 20150911
  Receipt Date: 20150911
  Transmission Date: 20151125
  Serious: Yes (Other)
  Sender: FDA-Public Use
  Company Number: None

PATIENT
  Sex: Female
  Weight: 101 kg

DRUGS (2)
  1. KEPPRA XR [Suspect]
     Active Substance: LEVETIRACETAM
  2. LEVETIRACETAM ER 750 [Suspect]
     Active Substance: LEVETIRACETAM

REACTIONS (2)
  - Seizure [None]
  - Partial seizures [None]
